FAERS Safety Report 25916058 (Version 1)
Quarter: 2025Q4

REPORT INFORMATION
  Report Type: Report from Study
  Country: CO (occurrence: CO)
  Receive Date: 20251013
  Receipt Date: 20251013
  Transmission Date: 20260118
  Serious: Yes (Other)
  Sender: NOVARTIS
  Company Number: CO-002147023-NVSC2025CO068717

PATIENT
  Age: 51 Year
  Sex: Female
  Weight: 98 kg

DRUGS (7)
  1. KISQALI [Suspect]
     Active Substance: RIBOCICLIB SUCCINATE
     Indication: Hormone receptor positive HER2 negative breast cancer
     Dosage: 600 MG, QD 3 (600 MG), QD
     Route: 048
     Dates: start: 20241001, end: 2025
  2. KISQALI [Suspect]
     Active Substance: RIBOCICLIB SUCCINATE
     Indication: Breast cancer metastatic
     Dosage: 400 MG, QD 2(400 MG), QD
     Route: 048
     Dates: start: 2025, end: 20250725
  3. KISQALI [Suspect]
     Active Substance: RIBOCICLIB SUCCINATE
     Dosage: 200 MG, QD
     Route: 048
     Dates: start: 20250725
  4. FEMARA [Suspect]
     Active Substance: LETROZOLE
     Indication: Hormone receptor positive HER2 negative breast cancer
     Dosage: 2.5 MG, QD
     Route: 048
     Dates: start: 20241001
  5. FEMARA [Suspect]
     Active Substance: LETROZOLE
     Indication: Breast cancer metastatic
  6. NIFEDIPINE [Concomitant]
     Active Substance: NIFEDIPINE
     Indication: Product used for unknown indication
     Dosage: UNK, QD, DAILY AT 8 AM
     Route: 065
  7. AMLODIPINE [Concomitant]
     Active Substance: AMLODIPINE BESYLATE
     Indication: Product used for unknown indication
     Dosage: 1 DOSAGE FORM, QD, TABLET
     Route: 048

REACTIONS (16)
  - Metastases to lymph nodes [Unknown]
  - Metastases to bone marrow [Unknown]
  - Constipation [Unknown]
  - Dry skin [Not Recovered/Not Resolved]
  - Dry mouth [Not Recovered/Not Resolved]
  - Dry eye [Not Recovered/Not Resolved]
  - Nasal dryness [Not Recovered/Not Resolved]
  - Ageusia [Not Recovered/Not Resolved]
  - Neutrophil count abnormal [Not Recovered/Not Resolved]
  - Platelet count abnormal [Not Recovered/Not Resolved]
  - Full blood count abnormal [Recovered/Resolved]
  - Discouragement [Unknown]
  - Fatigue [Unknown]
  - Oropharyngeal plaque [Unknown]
  - Ill-defined disorder [Unknown]
  - Skin plaque [Unknown]

NARRATIVE: CASE EVENT DATE: 20241101
